FAERS Safety Report 9835409 (Version 1)
Quarter: 2014Q1

REPORT INFORMATION
  Report Type: Spontaneous
  Country: US (occurrence: US)
  Receive Date: 20140122
  Receipt Date: 20140122
  Transmission Date: 20141002
  Serious: No
  Sender: FDA-Public Use
  Company Number: US-B.I. PHARMACEUTICALS,INC./RIDGEFIELD-2014-BI-01819BP

PATIENT
  Age: 27 Year
  Sex: Male
  Weight: 74 kg

DRUGS (3)
  1. ZANTAC (RANITIDINE HYDROCHLORIDE) [Suspect]
     Indication: DYSPEPSIA
     Dosage: 300 MG
     Route: 048
     Dates: start: 20140110
  2. ZANTAC (RANITIDINE HYDROCHLORIDE) [Suspect]
     Indication: DYSPEPSIA
  3. PEPTO BISMOL [Concomitant]
     Indication: ABDOMINAL PAIN UPPER
     Dosage: 4 ANZ
     Route: 048
     Dates: start: 20140110

REACTIONS (1)
  - Faeces discoloured [Not Recovered/Not Resolved]
